FAERS Safety Report 10594889 (Version 1)
Quarter: 2014Q4

REPORT INFORMATION
  Report Type: Spontaneous
  Country: FR (occurrence: FR)
  Receive Date: 20141120
  Receipt Date: 20141120
  Transmission Date: 20150529
  Serious: Yes (Other)
  Sender: FDA-Public Use
  Company Number: FR-ROCHE-1493207

PATIENT
  Age: 21 Year
  Sex: Female

DRUGS (6)
  1. SINGULAIR [Concomitant]
     Active Substance: MONTELUKAST SODIUM
     Route: 065
     Dates: start: 20130222
  2. OXEOL [Concomitant]
     Route: 065
     Dates: start: 20130222
  3. AERIUS (FRANCE) [Concomitant]
     Route: 065
     Dates: start: 20130222
  4. XOLAIR [Suspect]
     Active Substance: OMALIZUMAB
     Indication: ASTHMA
     Dosage: SINGLE DOSE
     Route: 058
     Dates: start: 20141023, end: 20141023
  5. XOLAIR [Suspect]
     Active Substance: OMALIZUMAB
     Dosage: SINGLE DOSE
     Route: 058
     Dates: start: 20140923, end: 20140923
  6. SYMBICORT [Concomitant]
     Active Substance: BUDESONIDE\FORMOTEROL FUMARATE DIHYDRATE
     Indication: ASTHMA
     Dosage: 400/12 UG
     Route: 065
     Dates: start: 20130222

REACTIONS (3)
  - Food intolerance [Unknown]
  - Nausea [Recovered/Resolved]
  - Vomiting [Recovered/Resolved]

NARRATIVE: CASE EVENT DATE: 20140923
